FAERS Safety Report 6630366-3 (Version None)
Quarter: 2010Q1

REPORT INFORMATION
  Report Type: 
  Country: None (occurrence: None)
  Receive Date: 20100311
  Receipt Date: 20090612
  Transmission Date: 20100710
  Serious: No
  Sender: FDA-Public Use
  Company Number: US-BIOGENIDEC-2009BI018534

PATIENT
  Age: 31 Year
  Sex: Female

DRUGS (2)
  1. AVONEX [Suspect]
     Indication: MULTIPLE SCLEROSIS
     Route: 030
     Dates: start: 19980301, end: 20031201
  2. AVONEX [Suspect]
     Route: 030
     Dates: start: 20060101, end: 20081001

REACTIONS (2)
  - BLOOD IRON DECREASED [None]
  - INSOMNIA [None]
